FAERS Safety Report 7249497-2 (Version None)
Quarter: 2011Q1

REPORT INFORMATION
  Report Type: 
  Country: None (occurrence: None)
  Receive Date: 20110119
  Receipt Date: 20110106
  Transmission Date: 20110831
  Serious: Yes (Death)
  Sender: FDA-Public Use
  Company Number: UTC-004094

PATIENT
  Age: 63 Year
  Sex: Female
  Weight: 104.3 kg

DRUGS (1)
  1. REMODULIN [Suspect]
     Dosage: 35.28 UG/KG (.0245 UG/KG, 1 IN 1 MIN) SUBCUTANEOUS
     Route: 058
     Dates: start: 20060113, end: 20101221

REACTIONS (1)
  - DEATH [None]
